FAERS Safety Report 5922082-8 (Version None)
Quarter: 2008Q4

REPORT INFORMATION
  Report Type: 
  Country: None (occurrence: None)
  Receive Date: 20081017
  Receipt Date: 20081013
  Transmission Date: 20090506
  Serious: Yes (Hospitalization)
  Sender: FDA-Public Use
  Company Number: B0541767B

PATIENT
  Sex: Female

DRUGS (3)
  1. LAPATINIB [Suspect]
     Indication: BREAST CANCER
     Dosage: 1000MG PER DAY
     Route: 048
     Dates: start: 20080222
  2. PACLITAXEL [Suspect]
     Indication: BREAST CANCER
     Dosage: 313MG EVERY 3 WEEKS
     Route: 042
  3. MYOCET [Suspect]
     Indication: BREAST CANCER
     Dosage: 107MG EVERY 3 WEEKS
     Route: 042
     Dates: start: 20080222

REACTIONS (1)
  - PLATELET COUNT DECREASED [None]
